FAERS Safety Report 23694155 (Version 1)
Quarter: 2024Q2

REPORT INFORMATION
  Report Type: Spontaneous
  Country: US (occurrence: US)
  Receive Date: 20240401
  Receipt Date: 20240401
  Transmission Date: 20240716
  Serious: No
  Sender: FDA-Public Use
  Company Number: US-GALDERMA-US2024004941

PATIENT

DRUGS (3)
  1. COSMETICS [Suspect]
     Active Substance: COSMETICS
     Indication: Product used for unknown indication
     Dosage: 1 DOSAGE FORM
     Route: 061
     Dates: start: 2023, end: 2023
  2. COSMETICS [Suspect]
     Active Substance: COSMETICS
     Dosage: 1 DOSAGE FORM
     Route: 061
     Dates: start: 2023
  3. DIFFERIN GEL [Suspect]
     Active Substance: ADAPALENE
     Indication: Acne
     Dosage: 1 DOSAGE FORM, QD
     Route: 061

REACTIONS (2)
  - Acne cystic [Recovered/Resolved]
  - Dry skin [Recovered/Resolved]
